FAERS Safety Report 10148969 (Version 2)
Quarter: 2014Q2

REPORT INFORMATION
  Report Type: Spontaneous
  Country: US (occurrence: US)
  Receive Date: 20140502
  Receipt Date: 20140502
  Transmission Date: 20141212
  Serious: No
  Sender: FDA-Public Use
  Company Number: US-009507513-1101USA00292

PATIENT
  Age: 70 Year
  Sex: 0

DRUGS (1)
  1. INVANZ [Suspect]
     Indication: OSTEOMYELITIS
     Dosage: 1 G, QD

REACTIONS (2)
  - Speech disorder [Unknown]
  - Miosis [Unknown]
